FAERS Safety Report 14157754 (Version 1)
Quarter: 2017Q4

REPORT INFORMATION
  Report Type: Spontaneous
  Country: GB (occurrence: GB)
  Receive Date: 20171103
  Receipt Date: 20171103
  Transmission Date: 20180321
  Serious: Yes (Other)
  Sender: FDA-Public Use
  Company Number: GB-TEVA-820072ACC

PATIENT
  Age: 1 Day
  Sex: Male
  Weight: 3.77 kg

DRUGS (1)
  1. ATRACURIUM [Suspect]
     Active Substance: ATRACURIUM
     Route: 040
     Dates: start: 20170930

REACTIONS (3)
  - Flushing [Recovering/Resolving]
  - Heart rate increased [Recovering/Resolving]
  - Blood pressure decreased [Recovering/Resolving]

NARRATIVE: CASE EVENT DATE: 20170930
